FAERS Safety Report 4380759-2 (Version None)
Quarter: 2004Q2

REPORT INFORMATION
  Report Type: 
  Country: None (occurrence: None)
  Receive Date: 20040614
  Receipt Date: 20040528
  Transmission Date: 20050107
  Serious: Yes (Other)
  Sender: FDA-Public Use
  Company Number: S04-USA-03103-01

PATIENT
  Age: 43 Year
  Sex: Male

DRUGS (7)
  1. LEXAPRO [Suspect]
     Indication: DEPRESSION
     Dosage: 20 MG QD PO
     Route: 048
     Dates: start: 20040514
  2. GABITRIL [Concomitant]
  3. PHENOBARB (PHENOBARBITAL SODIUM) [Concomitant]
  4. LISINOPRIL [Concomitant]
  5. ALLOPURINOL [Concomitant]
  6. PEPCID [Concomitant]
  7. DANTRUM (DANTROLENE SODIUM) [Concomitant]

REACTIONS (4)
  - ASTHENIA [None]
  - CONVULSION [None]
  - HYPOAESTHESIA [None]
  - PARAESTHESIA [None]
